FAERS Safety Report 11107995 (Version 3)
Quarter: 2015Q3

REPORT INFORMATION
  Report Type: Spontaneous
  Country: US (occurrence: US)
  Receive Date: 20150512
  Receipt Date: 20150717
  Transmission Date: 20151125
  Serious: No
  Sender: FDA-Public Use
  Company Number: US-GILEAD-2015-0151918

PATIENT
  Age: 49 Year
  Sex: Male
  Weight: 127 kg

DRUGS (2)
  1. RIBASPHERE RIBAPAK [Suspect]
     Active Substance: RIBAVIRIN
     Indication: PRODUCT USED FOR UNKNOWN INDICATION
     Route: 065
  2. SOVALDI [Suspect]
     Active Substance: SOFOSBUVIR
     Indication: PRODUCT USED FOR UNKNOWN INDICATION
     Route: 065

REACTIONS (1)
  - Drug dose omission [Unknown]
